FAERS Safety Report 15883805 (Version 2)
Quarter: 2021Q3

REPORT INFORMATION
  Report Type: Spontaneous
  Country: US (occurrence: US)
  Receive Date: 20190129
  Receipt Date: 20210701
  Transmission Date: 20211014
  Serious: No
  Sender: FDA-Public Use
  Company Number: US-AMGEN-USASP2019011423

PATIENT
  Age: 81 Year
  Sex: Female

DRUGS (2)
  1. BABY ASPIRIN [Concomitant]
     Active Substance: ASPIRIN
  2. PROLIA [Suspect]
     Active Substance: DENOSUMAB
     Indication: OSTEOPOROSIS POSTMENOPAUSAL
     Dosage: 60 MG, Q6MO
     Route: 065
     Dates: start: 201602

REACTIONS (9)
  - Bone loss [Unknown]
  - Immune system disorder [Not Recovered/Not Resolved]
  - Drug ineffective [Unknown]
  - Dental caries [Unknown]
  - Pain in jaw [Unknown]
  - Nausea [Unknown]
  - Hypophagia [Unknown]
  - Blood calcium increased [Not Recovered/Not Resolved]
  - Gingival recession [Unknown]
